FAERS Safety Report 21489864 (Version 4)
Quarter: 2022Q4

REPORT INFORMATION
  Report Type: Spontaneous
  Country: ES (occurrence: ES)
  Receive Date: 20221021
  Receipt Date: 20221115
  Transmission Date: 20230112
  Serious: Yes (Other)
  Sender: FDA-Public Use
  Company Number: ES-009507513-2209ESP003059

PATIENT
  Age: 61 Year
  Sex: Male

DRUGS (5)
  1. CUBICIN [Suspect]
     Active Substance: DAPTOMYCIN
     Indication: Bacteraemia
     Dosage: 500 MILLIGRAM, Q24H, VIAL
     Route: 042
     Dates: start: 20220905, end: 20220905
  2. OMEPRAZOLE [Concomitant]
     Active Substance: OMEPRAZOLE
     Dosage: DOSE: 40
     Route: 042
     Dates: start: 20220702
  3. ENOXAPARIN SODIUM [Concomitant]
     Active Substance: ENOXAPARIN SODIUM
     Dosage: DOSE: 40
     Route: 058
     Dates: start: 20220803
  4. MORPHINE [Concomitant]
     Active Substance: MORPHINE
     Dosage: 3 MILLIGRAM
     Route: 042
     Dates: start: 20220902, end: 20220908
  5. DEXKETOPROFEN [Concomitant]
     Active Substance: DEXKETOPROFEN
     Dosage: 50 MILLIGRAM
     Route: 042
     Dates: start: 20220902, end: 20220913

REACTIONS (2)
  - Periorbital oedema [Recovered/Resolved]
  - Product preparation issue [Unknown]

NARRATIVE: CASE EVENT DATE: 20220905
